FAERS Safety Report 9476937 (Version 1)
Quarter: 2013Q3

REPORT INFORMATION
  Report Type: Spontaneous
  Country: US (occurrence: US)
  Receive Date: 20130826
  Receipt Date: 20130826
  Transmission Date: 20140515
  Serious: Yes (Hospitalization)
  Sender: FDA-Public Use
  Company Number: US-BAXTER-2013BAX032848

PATIENT
  Age: 23 Year
  Sex: Male

DRUGS (3)
  1. ADVATE [Suspect]
     Indication: FACTOR VIII DEFICIENCY
     Dosage: +/- 10%
     Route: 042
     Dates: start: 201202
  2. ADVATE [Suspect]
     Indication: HAEMORRHAGE
     Route: 042
     Dates: start: 201308
  3. TYLENOL [Concomitant]
     Indication: PRODUCT USED FOR UNKNOWN INDICATION
     Route: 065

REACTIONS (1)
  - Road traffic accident [Unknown]
